FAERS Safety Report 4592226-1 (Version None)
Quarter: 2005Q1

REPORT INFORMATION
  Report Type: 
  Country: None (occurrence: None)
  Receive Date: 20050228
  Receipt Date: 20040913
  Transmission Date: 20050727
  Serious: Yes (Other)
  Sender: FDA-Public Use
  Company Number: US-BRISTOL-MYERS SQUIBB COMPANY-12700704

PATIENT
  Age: 13 Year
  Sex: Male
  Weight: 117 kg

DRUGS (4)
  1. ABILIFY [Suspect]
     Dosage: DECREASED TO 15 MG/DAY ON 16-SEP-2004
     Route: 048
     Dates: end: 20041001
  2. DEPAKOTE [Concomitant]
     Dosage: QHS  CHILD CONTINUED ON DEPAKOTE ER 1 GM DAILY
  3. DDAVP [Concomitant]
     Indication: ENURESIS
  4. METFORMIN HCL [Concomitant]

REACTIONS (1)
  - DIABETES MELLITUS [None]
